FAERS Safety Report 5652904-X (Version None)
Quarter: 2008Q1

REPORT INFORMATION
  Report Type: 
  Country: None (occurrence: None)
  Receive Date: 20080306
  Receipt Date: 20080229
  Transmission Date: 20080703
  Serious: Yes (Hospitalization)
  Sender: FDA-Public Use
  Company Number: FR-AVENTIS-200811979GDDC

PATIENT
  Age: 68 Year
  Sex: Male

DRUGS (8)
  1. AMARYL [Suspect]
     Route: 048
     Dates: end: 20071228
  2. ELISOR [Suspect]
     Route: 048
     Dates: end: 20071228
  3. GLUCOPHAGE [Suspect]
     Route: 048
     Dates: end: 20071228
  4. EZETROL [Suspect]
     Route: 048
     Dates: end: 20071228
  5. VIDEX [Suspect]
     Dates: end: 20071228
  6. VIREAD [Suspect]
     Route: 048
     Dates: end: 20071228
  7. NORVIR [Suspect]
     Route: 048
     Dates: end: 20071228
  8. PROTEASE INHIBITORS [Suspect]
     Route: 048
     Dates: end: 20071228

REACTIONS (2)
  - HEPATIC ENCEPHALOPATHY [None]
  - LACTIC ACIDOSIS [None]
